FAERS Safety Report 25371713 (Version 1)
Quarter: 2025Q2

REPORT INFORMATION
  Report Type: Spontaneous
  Country: DE (occurrence: DE)
  Receive Date: 20250529
  Receipt Date: 20250529
  Transmission Date: 20250717
  Serious: Yes (Hospitalization)
  Sender: ROCHE
  Company Number: DE-ROCHE-10000293608

PATIENT
  Age: 67 Year
  Sex: Female

DRUGS (5)
  1. OCREVUS [Suspect]
     Active Substance: OCRELIZUMAB
     Indication: Parkinson^s disease
     Route: 065
  2. BENSERAZIDE HYDROCHLORIDE\LEVODOPA [Suspect]
     Active Substance: BENSERAZIDE HYDROCHLORIDE\LEVODOPA
     Indication: Parkinson^s disease
     Route: 065
  3. ENTACAPONE [Concomitant]
     Active Substance: ENTACAPONE
  4. LEVODOPA [Concomitant]
     Active Substance: LEVODOPA
     Dosage: 5 X DAILY 100 MG
  5. LEVODOPA [Concomitant]
     Active Substance: LEVODOPA
     Dosage: MORNING AND THE AFTERNOON

REACTIONS (4)
  - Parkinson^s disease [Unknown]
  - Agitation [Unknown]
  - Dysarthria [Unknown]
  - Off label use [Unknown]
